FAERS Safety Report 4807770-9 (Version None)
Quarter: 2005Q4

REPORT INFORMATION
  Report Type: 
  Country: None (occurrence: None)
  Receive Date: 20051021
  Receipt Date: 20051011
  Transmission Date: 20060501
  Serious: Yes (Death)
  Sender: FDA-Public Use
  Company Number: 2005BH002273

PATIENT
  Age: 52 Year
  Sex: Male

DRUGS (1)
  1. MORPHINE [Suspect]
     Indication: DEATH

REACTIONS (2)
  - DEATH [None]
  - POST PROCEDURAL COMPLICATION [None]
